FAERS Safety Report 22279856 (Version 1)
Quarter: 2023Q2

REPORT INFORMATION
  Report Type: Spontaneous
  Country: US (occurrence: US)
  Receive Date: 20230503
  Receipt Date: 20230503
  Transmission Date: 20230722
  Serious: No
  Sender: FDA-Public Use
  Company Number: US-TEVA-2023-US-2878369

PATIENT
  Age: 75 Year
  Sex: Male

DRUGS (1)
  1. CLONIDINE HYDROCHLORIDE [Suspect]
     Active Substance: CLONIDINE HYDROCHLORIDE
     Indication: Hypertension
     Dosage: 0.1 MG/24HR
     Route: 062
     Dates: start: 20230406

REACTIONS (4)
  - Drug ineffective [Unknown]
  - Product administration error [Unknown]
  - Physical product label issue [Unknown]
  - Wrong technique in product usage process [Unknown]

NARRATIVE: CASE EVENT DATE: 20230401
